FAERS Safety Report 16477662 (Version 1)
Quarter: 2019Q2

REPORT INFORMATION
  Report Type: Report from Study
  Country: EG (occurrence: EG)
  Receive Date: 20190626
  Receipt Date: 20190626
  Transmission Date: 20190711
  Serious: Yes (Death)
  Sender: FDA-Public Use
  Company Number: PHHY2019EG145949

PATIENT
  Age: 68 Year
  Sex: Female

DRUGS (3)
  1. KISQALI [Suspect]
     Active Substance: RIBOCICLIB
     Indication: BREAST CANCER METASTATIC
     Dosage: 600 MG, QD
     Route: 048
     Dates: start: 201901
  2. KISQALI [Suspect]
     Active Substance: RIBOCICLIB
     Indication: METASTASES TO SKIN
  3. KISQALI [Suspect]
     Active Substance: RIBOCICLIB
     Indication: METASTASES TO LYMPH NODES

REACTIONS (1)
  - Death [Fatal]
